FAERS Safety Report 23435386 (Version 1)
Quarter: 2024Q1

REPORT INFORMATION
  Report Type: Spontaneous
  Country: CN (occurrence: CN)
  Receive Date: 20240123
  Receipt Date: 20240123
  Transmission Date: 20240410
  Serious: Yes (Other)
  Sender: FDA-Public Use
  Company Number: CN-HALEON-CNCH2024APC002530

PATIENT

DRUGS (4)
  1. DICLOFENAC DIETHYLAMINE [Suspect]
     Active Substance: DICLOFENAC DIETHYLAMINE
     Indication: Plantar fasciitis
     Dosage: 1 G, QD
     Route: 050
     Dates: start: 20231225, end: 20231227
  2. CELECOXIB [Suspect]
     Active Substance: CELECOXIB
     Indication: Plantar fasciitis
     Dosage: 0.2 G, BID
     Route: 048
     Dates: start: 20231225, end: 20231227
  3. LOXOPROFEN SODIUM [Suspect]
     Active Substance: LOXOPROFEN SODIUM
     Indication: Plantar fasciitis
     Dosage: 1 DF, QD
     Route: 050
     Dates: start: 20231225, end: 20231227
  4. TIZANIDINE HYDROCHLORIDE [Suspect]
     Active Substance: TIZANIDINE HYDROCHLORIDE
     Indication: Plantar fasciitis
     Dosage: 2 MG, TID
     Route: 048
     Dates: start: 20231225, end: 20231227

REACTIONS (4)
  - Rash papular [Recovered/Resolved]
  - Pruritus [Recovered/Resolved]
  - Macule [Recovered/Resolved]
  - Inappropriate schedule of product administration [Unknown]

NARRATIVE: CASE EVENT DATE: 20231225
